FAERS Safety Report 21634132 (Version 2)
Quarter: 2022Q4

REPORT INFORMATION
  Report Type: Spontaneous
  Country: US (occurrence: US)
  Receive Date: 20221123
  Receipt Date: 20221209
  Transmission Date: 20230113
  Serious: No
  Sender: FDA-Public Use
  Company Number: US-BRISTOL-MYERS SQUIBB COMPANY-2022-141950

PATIENT
  Age: 87 Year
  Sex: Male

DRUGS (2)
  1. REVLIMID [Suspect]
     Active Substance: LENALIDOMIDE
     Indication: Plasma cell myeloma
     Route: 048
     Dates: start: 20220823, end: 20221115
  2. REVLIMID [Suspect]
     Active Substance: LENALIDOMIDE
     Route: 065

REACTIONS (1)
  - Rash pruritic [Recovered/Resolved]

NARRATIVE: CASE EVENT DATE: 20221022
